FAERS Safety Report 8389483 (Version 2)
Quarter: 2012Q4

REPORT INFORMATION
  Report Type: 
  Country: US (occurrence: US)
  Receive Date: 20120203
  Receipt Date: 20121008
  Transmission Date: 20130627
  Serious: Yes (Death)
  Sender: FDA-Public Use
  Company Number: US-ROCHE-1036302

PATIENT
  Sex: Female

DRUGS (3)
  1. RITUXAN [Suspect]
     Indication: WEGENER^S GRANULOMATOSIS
     Route: 065
  2. RITUXAN [Suspect]
     Indication: PULMONARY GRANULOMA
  3. RITUXAN [Suspect]
     Indication: WEGENER^S GRANULOMATOSIS

REACTIONS (3)
  - Death [Fatal]
  - Lung disorder [Unknown]
  - Condition aggravated [Unknown]
